FAERS Safety Report 10911033 (Version 2)
Quarter: 2015Q2

REPORT INFORMATION
  Report Type: Report from Study
  Country: US (occurrence: US)
  Receive Date: 20150312
  Receipt Date: 20150403
  Transmission Date: 20150821
  Serious: Yes (Hospitalization)
  Sender: FDA-Public Use
  Company Number: US-GILEAD-2015-0140802

PATIENT
  Age: 59 Year
  Sex: Male
  Weight: 87.1 kg

DRUGS (39)
  1. BENDAMUSTINE [Suspect]
     Active Substance: BENDAMUSTINE
     Dosage: 190 MG, CYCLICAL
     Route: 042
     Dates: start: 20140730, end: 20140730
  2. RITUXIMAB [Suspect]
     Active Substance: RITUXIMAB
     Dosage: 1055 MG, CYCLICAL
     Route: 042
     Dates: start: 20140924, end: 20140924
  3. HYDROCORTISONE. [Concomitant]
     Active Substance: HYDROCORTISONE
     Indication: RASH
     Route: 061
     Dates: start: 20140712
  4. LEVAQUIN [Concomitant]
     Active Substance: LEVOFLOXACIN
     Indication: PYREXIA
     Dosage: UNK
     Route: 042
     Dates: start: 20150226
  5. BENDAMUSTINE [Suspect]
     Active Substance: BENDAMUSTINE
     Dosage: 190 MG, CYCLICAL
     Route: 042
     Dates: start: 20140703, end: 20140703
  6. BENDAMUSTINE [Suspect]
     Active Substance: BENDAMUSTINE
     Dosage: 190 MG, CYCLICAL
     Route: 042
     Dates: start: 20140828, end: 20140828
  7. BENDAMUSTINE [Suspect]
     Active Substance: BENDAMUSTINE
     Dosage: 190 MG, CYCLICAL
     Route: 042
     Dates: start: 20140924, end: 20140924
  8. BENDAMUSTINE [Suspect]
     Active Substance: BENDAMUSTINE
     Dosage: 190 MG, CYCLICAL
     Route: 042
     Dates: start: 20141023, end: 20141023
  9. RITUXIMAB [Suspect]
     Active Substance: RITUXIMAB
     Dosage: 1055 MG, CYCLICAL
     Route: 042
     Dates: start: 20141022, end: 20141022
  10. RITUXIMAB [Suspect]
     Active Substance: RITUXIMAB
     Dosage: 1055 MG, CYCLICAL
     Route: 042
     Dates: start: 20141119, end: 20141119
  11. LORATADINE. [Concomitant]
     Active Substance: LORATADINE
     Indication: ANTIALLERGIC THERAPY
     Route: 048
     Dates: start: 20141201
  12. AUGMENTIN [Concomitant]
     Active Substance: AMOXICILLIN\CLAVULANATE POTASSIUM
     Indication: DEVICE RELATED INFECTION
  13. BENDAMUSTINE [Suspect]
     Active Substance: BENDAMUSTINE
     Indication: CHRONIC LYMPHOCYTIC LEUKAEMIA
     Dosage: 190 MG, CYCLICAL
     Route: 042
     Dates: start: 20140702, end: 20140702
  14. BENDAMUSTINE [Suspect]
     Active Substance: BENDAMUSTINE
     Dosage: 190 MG, CYCLICAL
     Route: 042
     Dates: start: 20141022, end: 20141022
  15. RITUXIMAB [Suspect]
     Active Substance: RITUXIMAB
     Dosage: 1055 MG, CYCLICAL
     Route: 042
     Dates: start: 20140827, end: 20140827
  16. ACETAMINOPHEN. [Concomitant]
     Active Substance: ACETAMINOPHEN
     Indication: PREMEDICATION
     Route: 048
     Dates: start: 20140702
  17. BENDAMUSTINE [Suspect]
     Active Substance: BENDAMUSTINE
     Dosage: 190 MG, CYCLICAL
     Route: 042
     Dates: start: 20140827, end: 20140827
  18. BENDAMUSTINE [Suspect]
     Active Substance: BENDAMUSTINE
     Dosage: 190 MG, CYCLICAL
     Route: 042
     Dates: start: 20141119, end: 20141119
  19. RITUXIMAB [Suspect]
     Active Substance: RITUXIMAB
     Indication: CHRONIC LYMPHOCYTIC LEUKAEMIA
     Dosage: 791 MG, CYCLICAL
     Route: 042
     Dates: start: 20140702, end: 20140702
  20. BENAZEPRIL [Concomitant]
     Active Substance: BENAZEPRIL\BENAZEPRIL HYDROCHLORIDE
     Indication: HYPERTENSION
     Dosage: UNK
     Route: 048
     Dates: start: 2007
  21. RITUXIMAB [Suspect]
     Active Substance: RITUXIMAB
     Dosage: 1000 MG, CYCLICAL
     Route: 042
     Dates: start: 20140730, end: 20140730
  22. DIPHENHYDRAMINE                    /00000402/ [Concomitant]
     Active Substance: DIPHENHYDRAMINE
     Indication: PREMEDICATION
     Dosage: UNK
     Route: 042
     Dates: start: 20140702
  23. BENADRYL [Concomitant]
     Active Substance: DIPHENHYDRAMINE HYDROCHLORIDE
     Indication: RASH
     Route: 048
     Dates: start: 20140712
  24. LEVAQUIN [Concomitant]
     Active Substance: LEVOFLOXACIN
     Indication: URINARY TRACT INFECTION
  25. VANCOMYCIN [Concomitant]
     Active Substance: VANCOMYCIN
     Indication: PYREXIA
     Dosage: UNK
     Route: 042
     Dates: start: 20150226, end: 20150228
  26. IDELALISIB [Suspect]
     Active Substance: IDELALISIB
     Indication: CHRONIC LYMPHOCYTIC LEUKAEMIA
     Dosage: 150 MG, BID
     Route: 048
     Dates: start: 20140702, end: 20140713
  27. BENDAMUSTINE [Suspect]
     Active Substance: BENDAMUSTINE
     Dosage: 190 MG, CYCLICAL
     Route: 042
     Dates: start: 20141120, end: 20141120
  28. PALONOSETRON [Concomitant]
     Active Substance: PALONOSETRON
     Indication: PREMEDICATION
     Route: 042
     Dates: start: 20140702
  29. ZOFRAN                             /00955301/ [Concomitant]
     Active Substance: ONDANSETRON HYDROCHLORIDE
     Indication: PREMEDICATION
     Route: 048
     Dates: start: 20140702
  30. IDELALISIB [Suspect]
     Active Substance: IDELALISIB
     Dosage: 150 MG, BID
     Route: 048
     Dates: start: 20141022, end: 20150226
  31. BENDAMUSTINE [Suspect]
     Active Substance: BENDAMUSTINE
     Dosage: 190 MG, CYCLICAL
     Route: 042
     Dates: start: 20140731, end: 20140731
  32. BENDAMUSTINE [Suspect]
     Active Substance: BENDAMUSTINE
     Dosage: 190 MG, CYCLICAL
     Route: 042
     Dates: start: 20140925, end: 20140925
  33. AUGMENTIN [Concomitant]
     Active Substance: AMOXICILLIN\CLAVULANATE POTASSIUM
     Indication: PYREXIA
     Dosage: UNK
     Route: 048
     Dates: start: 20150223, end: 20150226
  34. CEFEPIME [Concomitant]
     Active Substance: CEFEPIME\CEFEPIME HYDROCHLORIDE
     Indication: PYREXIA
     Route: 042
     Dates: start: 20150226, end: 20150228
  35. IDELALISIB [Suspect]
     Active Substance: IDELALISIB
     Dosage: 100 MG, BID
     Route: 048
     Dates: start: 20140730, end: 20141022
  36. DEXAMETHASONE SODIUM PHOSPHATE. [Concomitant]
     Active Substance: DEXAMETHASONE SODIUM PHOSPHATE
     Indication: PREMEDICATION
     Dosage: UNK
     Route: 042
     Dates: start: 20140702
  37. MEPRON                             /01181501/ [Concomitant]
     Active Substance: ATOVAQUONE
     Route: 048
     Dates: start: 20140730
  38. CEFEPIME [Concomitant]
     Active Substance: CEFEPIME\CEFEPIME HYDROCHLORIDE
     Indication: URINARY TRACT INFECTION
  39. VANCOMYCIN [Concomitant]
     Active Substance: VANCOMYCIN
     Indication: URINARY TRACT INFECTION

REACTIONS (1)
  - Pneumonitis [Recovered/Resolved]

NARRATIVE: CASE EVENT DATE: 20150304
